FAERS Safety Report 12790503 (Version 1)
Quarter: 2016Q3

REPORT INFORMATION
  Report Type: Report from Study
  Country: CN (occurrence: CN)
  Receive Date: 20160929
  Receipt Date: 20160929
  Transmission Date: 20161109
  Serious: Yes (Other)
  Sender: FDA-Public Use
  Company Number: CN-CIPLA LTD.-2016CN18782

PATIENT

DRUGS (1)
  1. LAMIVUDINE. [Suspect]
     Active Substance: LAMIVUDINE
     Indication: ANTIVIRAL PROPHYLAXIS
     Dosage: 100 MG, DAILY, 24TH TO 32ND WEEK OF GESTATION
     Route: 065

REACTIONS (2)
  - Premature delivery [Unknown]
  - Exposure during pregnancy [Unknown]
